FAERS Safety Report 20136883 (Version 2)
Quarter: 2021Q4

REPORT INFORMATION
  Report Type: Report from Study
  Country: HU (occurrence: HU)
  Receive Date: 20211201
  Receipt Date: 20211214
  Transmission Date: 20220303
  Serious: Yes (Other)
  Sender: FDA-Public Use
  Company Number: HU-002147023-NVSC2021HU166095

PATIENT
  Age: 66 Year
  Sex: Female

DRUGS (3)
  1. METFORMIN [Suspect]
     Active Substance: METFORMIN HYDROCHLORIDE
     Indication: Product used for unknown indication
     Dosage: UNK
     Route: 065
  2. VILDAGLIPTIN [Suspect]
     Active Substance: VILDAGLIPTIN
     Indication: Diabetes mellitus
     Dosage: UNK
     Route: 065
     Dates: start: 2016
  3. VILDAGLIPTIN [Suspect]
     Active Substance: VILDAGLIPTIN
     Dosage: 50 MILLIGRAM
     Route: 065
     Dates: start: 2021, end: 2021

REACTIONS (14)
  - Blood glucose decreased [Unknown]
  - General physical health deterioration [Unknown]
  - Feeling abnormal [Recovered/Resolved]
  - Arthralgia [Recovered/Resolved]
  - Gait disturbance [Unknown]
  - Pain in extremity [Recovered/Resolved]
  - Insomnia [Unknown]
  - Dysstasia [Recovered/Resolved]
  - Pain of skin [Unknown]
  - Drug hypersensitivity [Unknown]
  - Ill-defined disorder [Unknown]
  - Pain [Unknown]
  - Myalgia [Recovered/Resolved]
  - Abdominal pain [Recovered/Resolved]

NARRATIVE: CASE EVENT DATE: 20210101
